FAERS Safety Report 8128517-7 (Version None)
Quarter: 2012Q1

REPORT INFORMATION
  Report Type: 
  Country: None (occurrence: None)
  Receive Date: 20120210
  Receipt Date: 20120129
  Transmission Date: 20120608
  Serious: Yes (Other)
  Sender: FDA-Public Use
  Company Number: DE-UCBSA-048184

PATIENT
  Sex: Female
  Weight: 63 kg

DRUGS (7)
  1. CERTOLIZUMAB PEGOL [Suspect]
     Indication: RHEUMATOID ARTHRITIS
     Route: 058
     Dates: start: 20101001
  2. CERTOLIZUMAB PEGOL [Suspect]
     Route: 058
     Dates: start: 20100809, end: 20100930
  3. AZATHIOPRINE [Concomitant]
     Indication: AUTOIMMUNE HEPATITIS
     Dates: start: 20020101
  4. VITAMIN B-12 [Concomitant]
     Indication: IRON DEFICIENCY ANAEMIA
     Dosage: Q2S
     Dates: start: 20110124
  5. FERRLECIT [Concomitant]
     Indication: IRON DEFICIENCY ANAEMIA
     Dosage: Q2S
     Dates: start: 20110124
  6. PREDNISONE TAB [Concomitant]
     Indication: RHEUMATOID ARTHRITIS
     Dates: start: 20100914, end: 20100918
  7. PREDNISONE TAB [Concomitant]
     Dates: start: 20101026

REACTIONS (1)
  - LYMPHADENITIS [None]
